FAERS Safety Report 9879697 (Version 1)
Quarter: 2014Q1

REPORT INFORMATION
  Report Type: Spontaneous
  Country: DE (occurrence: FR)
  Receive Date: 20140206
  Receipt Date: 20140206
  Transmission Date: 20141002
  Serious: Yes (Other)
  Sender: FDA-Public Use
  Company Number: FR-FRI-1000053981

PATIENT
  Age: 80 Year
  Sex: Female

DRUGS (7)
  1. MEMANTINE [Suspect]
     Indication: DEMENTIA ALZHEIMER^S TYPE
     Dosage: 20 MG
     Route: 048
     Dates: end: 20131017
  2. MEMANTINE [Suspect]
     Dosage: 10 MG
     Route: 048
     Dates: start: 20131018, end: 20131028
  3. EXELON [Concomitant]
     Dosage: 1 DF
  4. MIANSERIN [Concomitant]
     Dosage: 20 MG
  5. LEVOTHYROX [Concomitant]
  6. SIMVASTATINE [Concomitant]
     Dosage: 20 MG
  7. TENORDATE [Concomitant]
     Dosage: 1 DF

REACTIONS (3)
  - Petit mal epilepsy [Recovered/Resolved]
  - Tonic convulsion [Recovered/Resolved]
  - Extrapyramidal disorder [Recovered/Resolved]
